FAERS Safety Report 6322017-2 (Version None)
Quarter: 2009Q3

REPORT INFORMATION
  Report Type: 
  Country: None (occurrence: None)
  Receive Date: 20090824
  Receipt Date: 20090813
  Transmission Date: 20100115
  Serious: Yes (Hospitalization)
  Sender: FDA-Public Use
  Company Number: FR-JNJFOC-20090804954

PATIENT
  Age: 25 Year
  Sex: Male

DRUGS (3)
  1. CAELYX [Suspect]
     Dosage: CYCLE 4
     Route: 042
  2. CAELYX [Suspect]
     Dosage: CYCLE 3
     Route: 042
  3. CAELYX [Suspect]
     Indication: KAPOSI'S SARCOMA
     Dosage: CYCLES 1-2
     Route: 042

REACTIONS (1)
  - CYSTITIS HAEMORRHAGIC [None]
